FAERS Safety Report 8818256 (Version 1)
Quarter: 2012Q4

REPORT INFORMATION
  Report Type: 
  Country: GB (occurrence: GB)
  Receive Date: 20121001
  Receipt Date: 20121001
  Transmission Date: 20130627
  Serious: Yes (Disabling)
  Sender: FDA-Public Use
  Company Number: GB-GLAXOSMITHKLINE-B0832501A

PATIENT
  Age: 75 Year
  Sex: Female
  Weight: 61.3 kg

DRUGS (1)
  1. SERETIDE [Suspect]
     Indication: ASTHMA
     Route: 055
     Dates: start: 200908, end: 201011

REACTIONS (2)
  - Cough [Recovered/Resolved]
  - Stress urinary incontinence [Recovered/Resolved]
